FAERS Safety Report 7207574-6 (Version None)
Quarter: 2011Q1

REPORT INFORMATION
  Report Type: 
  Country: None (occurrence: None)
  Receive Date: 20110103
  Receipt Date: 20101223
  Transmission Date: 20110831
  Serious: Yes (Hospitalization)
  Sender: FDA-Public Use
  Company Number: FR-PFIZER INC-FR-WYE-H15055110

PATIENT
  Age: 80 Year
  Sex: Male

DRUGS (6)
  1. ESOMEPRAZOLE [Suspect]
     Dosage: UNSPECIFIED
     Route: 048
     Dates: start: 20090901, end: 20100322
  2. RAMIPRIL [Suspect]
     Dosage: UNSPECIFIED
     Route: 048
     Dates: start: 20100201, end: 20100301
  3. PREVISCAN [Suspect]
     Dosage: DOSE UNSPECIFIED (DAILY)
     Route: 048
     Dates: start: 20091001, end: 20100301
  4. CORDARONE [Suspect]
     Dosage: 200 MG(FREQUENCY UNSPECIFIED)
     Route: 048
     Dates: start: 20091001, end: 20100322
  5. ROSUVASTATIN [Suspect]
     Dosage: UNSPECIFIED
     Route: 048
     Dates: start: 20100101, end: 20100322
  6. CARDENSIEL [Suspect]
     Dosage: UNSPECIFIED
     Route: 048
     Dates: start: 20091001, end: 20100322

REACTIONS (1)
  - VASCULAR PURPURA [None]
